FAERS Safety Report 5168784-5 (Version None)
Quarter: 2006Q4

REPORT INFORMATION
  Report Type: 
  Country: None (occurrence: None)
  Receive Date: 20061211
  Receipt Date: 20061130
  Transmission Date: 20070319
  Serious: Yes (Hospitalization)
  Sender: FDA-Public Use
  Company Number: US-AMGEN-US201885

PATIENT
  Sex: Female

DRUGS (5)
  1. NEULASTA [Suspect]
     Indication: CHEMOTHERAPY
     Route: 065
     Dates: start: 20061124
  2. CYCLOPHOSPHAMIDE [Concomitant]
     Route: 065
  3. VINCRISTINE [Concomitant]
     Route: 065
  4. PREDNISONE TAB [Concomitant]
     Route: 065
  5. RITUXAN [Concomitant]

REACTIONS (2)
  - BACK PAIN [None]
  - RESPIRATORY DISTRESS [None]
